FAERS Safety Report 5003503-4 (Version None)
Quarter: 2006Q2

REPORT INFORMATION
  Report Type: 
  Country: None (occurrence: None)
  Receive Date: 20060512
  Receipt Date: 20060427
  Transmission Date: 20061013
  Serious: Yes (Hospitalization)
  Sender: FDA-Public Use
  Company Number: 2006BI000772

PATIENT
  Age: 37 Year
  Sex: Male
  Weight: 85.7298 kg

DRUGS (8)
  1. AVONEX [Suspect]
     Indication: MULTIPLE SCLEROSIS
     Dosage: 30 UG;QW;IM
     Route: 030
     Dates: start: 20050325
  2. DILANTIN [Concomitant]
  3. DEPAKOTE [Concomitant]
  4. CELEXA [Concomitant]
  5. LOTREL [Concomitant]
  6. DIAZEPAM [Concomitant]
  7. NEURONTIN [Concomitant]
  8. ^M-OXY^ [Concomitant]

REACTIONS (20)
  - CONVERSION DISORDER [None]
  - DECUBITUS ULCER [None]
  - DEVICE RELATED INFECTION [None]
  - ENCEPHALOPATHY [None]
  - GASTRIC INFECTION [None]
  - GRAND MAL CONVULSION [None]
  - HUMAN T-CELL LYMPHOTROPIC VIRUS TYPE I INFECTION [None]
  - IATROGENIC INJURY [None]
  - INFECTION [None]
  - INTRACRANIAL HYPOTENSION [None]
  - LOCALISED INFECTION [None]
  - MUSCLE SPASMS [None]
  - MYELOPATHY [None]
  - PAIN [None]
  - PSEUDOMENINGOCELE [None]
  - PYREXIA [None]
  - SPASTIC PARAPLEGIA [None]
  - STAPHYLOCOCCAL INFECTION [None]
  - URINARY TRACT INFECTION [None]
  - WOUND SECRETION [None]
